FAERS Safety Report 8004786-9 (Version None)
Quarter: 2011Q4

REPORT INFORMATION
  Report Type: 
  Country: None (occurrence: None)
  Receive Date: 20111223
  Receipt Date: 20111215
  Transmission Date: 20120403
  Serious: Yes (Hospitalization, Other)
  Sender: FDA-Public Use
  Company Number: US-ASTELLAS-2011US007516

PATIENT
  Sex: Female
  Weight: 63 kg

DRUGS (9)
  1. VESICARE [Suspect]
     Indication: PRODUCT USED FOR UNKNOWN INDICATION
     Dosage: 10 MG, UNKNOWN/D
     Route: 048
     Dates: start: 20110510
  2. COREG [Concomitant]
     Indication: HYPERTENSION
     Dosage: 12.5 MG, BID
     Route: 065
     Dates: start: 20110429
  3. ASPIRIN [Concomitant]
     Indication: PRODUCT USED FOR UNKNOWN INDICATION
     Dosage: UNK
     Route: 065
  4. SPIRONOLACTONE [Concomitant]
     Indication: HYPERTENSION
     Dosage: UNK
     Route: 065
  5. IBUPROFEN [Concomitant]
     Indication: PRODUCT USED FOR UNKNOWN INDICATION
     Dosage: UNK
     Route: 065
  6. PRILOSEC [Concomitant]
     Indication: PRODUCT USED FOR UNKNOWN INDICATION
     Dosage: UNK
     Route: 065
  7. LISINOPRIL [Concomitant]
     Indication: HYPERTENSION
     Dosage: 20 MG, BID
     Route: 065
  8. ESTRADIOL [Concomitant]
     Indication: PRODUCT USED FOR UNKNOWN INDICATION
     Dosage: UNK
     Route: 065
  9. COREG [Concomitant]
     Dosage: 25 MG, BID
     Route: 065
     Dates: start: 20110503

REACTIONS (4)
  - FATIGUE [None]
  - MYOCARDIAL INFARCTION [None]
  - DEPRESSION [None]
  - BLOOD PRESSURE INCREASED [None]
